FAERS Safety Report 26047522 (Version 1)
Quarter: 2025Q4

REPORT INFORMATION
  Report Type: Spontaneous
  Country: US (occurrence: None)
  Receive Date: 20251114
  Receipt Date: 20251114
  Transmission Date: 20260118
  Serious: Yes (Other)
  Sender: FDA-CTU
  Company Number: None

PATIENT
  Age: 45 Year
  Sex: Male

DRUGS (3)
  1. CYANOCOBALAMIN\NALTREXONE [Suspect]
     Active Substance: CYANOCOBALAMIN\NALTREXONE
     Indication: Weight decreased
     Dosage: TWICE A DAY ORAL ?
     Route: 048
     Dates: end: 20251114
  2. BUPROPION [Suspect]
     Active Substance: BUPROPION
  3. METFORMIN [Suspect]
     Active Substance: METFORMIN HYDROCHLORIDE

REACTIONS (3)
  - Cough [None]
  - Wheezing [None]
  - Drug hypersensitivity [None]

NARRATIVE: CASE EVENT DATE: 20251114
